FAERS Safety Report 7967700-8 (Version None)
Quarter: 2011Q4

REPORT INFORMATION
  Report Type: 
  Country: None (occurrence: None)
  Receive Date: 20111207
  Receipt Date: 20111122
  Transmission Date: 20120403
  Serious: Yes (Other)
  Sender: FDA-Public Use
  Company Number: 1000025364

PATIENT
  Age: 80 Year
  Sex: Female
  Weight: 68 kg

DRUGS (12)
  1. ROFLUMILAST (ROFLUMILAST) (500 MICROGRAM, TABLETS) [Suspect]
     Indication: CHRONIC OBSTRUCTIVE PULMONARY DISEASE
     Dosage: 500 MCG, ORAL
     Route: 048
     Dates: start: 20110127, end: 20110407
  2. SPIRIVA (TIOTROPIIUM BROMIDE) [Concomitant]
  3. RAMIPRIL COMP-CT (RAMIPRIL, HYDROCHLOROTHIAZIDE) [Concomitant]
  4. AMLODIPINE [Concomitant]
  5. SYMBICORT [Concomitant]
  6. ASPIRIN [Concomitant]
  7. MICARDIS [Concomitant]
  8. ZOPLICON (ZOPICLONE)(ZOPICLONE) [Concomitant]
  9. MOXONIDIN (MOXONIDINE) [Concomitant]
  10. SIMVASTATIN [Concomitant]
  11. METOPROLOL TARTRATE [Concomitant]
  12. DURAGESIC-100 [Concomitant]

REACTIONS (7)
  - DIARRHOEA [None]
  - WEIGHT DECREASED [None]
  - DIZZINESS [None]
  - MALAISE [None]
  - DRUG INTOLERANCE [None]
  - NAUSEA [None]
  - TREMOR [None]
